FAERS Safety Report 8520604-4 (Version None)
Quarter: 2012Q3

REPORT INFORMATION
  Report Type: 
  Country: None (occurrence: None)
  Receive Date: 20120719
  Receipt Date: 20120716
  Transmission Date: 20120928
  Serious: Yes (Hospitalization, Congenital Anomaly, Other)
  Sender: FDA-Public Use
  Company Number: DE-PFIZER INC-2012170159

PATIENT
  Sex: Male
  Weight: 2.715 kg

DRUGS (4)
  1. VENLAFAXINE HCL [Suspect]
     Dosage: 150 MG DAILY
     Route: 063
  2. VENLAFAXINE HCL [Suspect]
     Indication: DEPRESSION
     Dosage: 150 MG DAILY
     Route: 064
  3. LEVOTHYROXINE SODIUM [Concomitant]
     Indication: HYPOTHYROIDISM
     Dosage: 112 UG DAILY
     Route: 064
  4. ACICLOVIR [Concomitant]
     Indication: GENITAL HERPES
     Dosage: UNK
     Route: 064

REACTIONS (4)
  - MATERNAL EXPOSURE TIMING UNSPECIFIED [None]
  - EXPOSURE DURING BREAST FEEDING [None]
  - TALIPES [None]
  - HYPOTHERMIA NEONATAL [None]
